FAERS Safety Report 18756819 (Version 1)
Quarter: 2021Q1

REPORT INFORMATION
  Report Type: Spontaneous
  Country: US (occurrence: US)
  Receive Date: 20210119
  Receipt Date: 20210119
  Transmission Date: 20210419
  Serious: Yes (Other)
  Sender: FDA-Public Use
  Company Number: US-PFIZER INC-2019122200

PATIENT
  Age: 47 Year
  Sex: Male
  Weight: 87 kg

DRUGS (11)
  1. FOLBIC [Concomitant]
     Active Substance: CYANOCOBALAMIN\FOLIC ACID\PYRIDOXINE
     Dosage: 1 DF, DAILY
     Route: 048
     Dates: start: 20200120
  2. CADUET [Suspect]
     Active Substance: AMLODIPINE BESYLATE\ATORVASTATIN CALCIUM
     Indication: HYPERTENSION
     Dosage: 10 MG, UNK (STRENGTH IS 10 MG/10 MG)
  3. ACETAMINOPHEN. [Concomitant]
     Active Substance: ACETAMINOPHEN
     Dosage: 300 MG, AS NEEDED (TAKE 1 TABLET BY MOUTH TWICE A DAY AS NEEDED)
     Route: 048
  4. ATORVASTATIN [Concomitant]
     Active Substance: ATORVASTATIN
     Dosage: 10 MG, 1X/DAY
     Route: 048
  5. CADUET [Suspect]
     Active Substance: AMLODIPINE BESYLATE\ATORVASTATIN CALCIUM
     Indication: BLOOD CHOLESTEROL ABNORMAL
     Dosage: 10 MG, 1X/DAY
     Route: 048
  6. AMLODIPINE [Concomitant]
     Active Substance: AMLODIPINE BESYLATE
     Dosage: 10 MG, 1X/DAY
     Route: 048
  7. FOLBIC [Concomitant]
     Active Substance: CYANOCOBALAMIN\FOLIC ACID\PYRIDOXINE
     Dosage: 1 DF, DAILY(2.5 MG?25 MG?2 MG TABLET 20JAN2020 CHANGED: TAKE 1 TABLET BY MOUTH EVERY DAY)
     Route: 048
  8. ASPIRIN 81 [Concomitant]
     Active Substance: ASPIRIN
     Dosage: 81 MG, 1X/DAY
     Route: 048
  9. CODEINE [Concomitant]
     Active Substance: CODEINE
     Dosage: 30 MG, AS NEEDED (TAKE 1 TABLET BY MOUTH TWICE A DAY AS NEEDED)
     Route: 048
  10. AZELASTINE. [Concomitant]
     Active Substance: AZELASTINE HYDROCHLORIDE
     Dosage: UNK, AS NEEDED (SPRAY 2 SPRAY(S) TWICE A DAY BY INTRANASAL ROUTE AS NEEDED FOR 30 DAYS)
     Route: 045
  11. ALPRAZOLAM. [Concomitant]
     Active Substance: ALPRAZOLAM
     Indication: ANXIETY
     Dosage: 0.5 MG, AS NEEDED (TAKE 1 TABLET BY MOUTH TWICE A DAY AS NEEDED)
     Route: 048

REACTIONS (1)
  - Cerebrovascular accident [Unknown]
